FAERS Safety Report 4292568-3 (Version None)
Quarter: 2004Q1

REPORT INFORMATION
  Report Type: 
  Country: None (occurrence: None)
  Receive Date: 20040210
  Receipt Date: 20040204
  Transmission Date: 20041129
  Serious: Yes (Other)
  Sender: FDA-Public Use
  Company Number: A0496534A

PATIENT
  Age: 57 Year
  Sex: Female

DRUGS (1)
  1. COMMIT [Suspect]
     Indication: EX-SMOKER
     Dosage: 4 MG/ NINE TIMES PER DAY/ TRANSB
     Route: 002
     Dates: start: 20030601, end: 20030827

REACTIONS (5)
  - FATIGUE [None]
  - HEPATIC CIRRHOSIS [None]
  - IRRITABILITY [None]
  - LOCALISED OEDEMA [None]
  - OEDEMA PERIPHERAL [None]
